FAERS Safety Report 17272014 (Version 1)
Quarter: 2020Q1

REPORT INFORMATION
  Report Type: Spontaneous
  Country: US (occurrence: US)
  Receive Date: 20191223
  Receipt Date: 20191223
  Transmission Date: 20200409
  Serious: Yes (Hospitalization)
  Sender: FDA-Public Use
  Company Number: None

PATIENT
  Age: 63 Year
  Sex: Male
  Weight: 88.9 kg

DRUGS (1)
  1. AMIODARONE (AMIODARONE HCL (GENENVA) 200MG TAB [Suspect]
     Active Substance: AMIODARONE
     Indication: ATRIAL FIBRILLATION
     Dates: start: 20190505, end: 20191105

REACTIONS (3)
  - Thyroxine free increased [None]
  - Blood thyroid stimulating hormone decreased [None]
  - Hyperthyroidism [None]

NARRATIVE: CASE EVENT DATE: 20191105
